FAERS Safety Report 6043125-X (Version None)
Quarter: 2009Q1

REPORT INFORMATION
  Report Type: 
  Country: None (occurrence: None)
  Receive Date: 20090119
  Receipt Date: 20090106
  Transmission Date: 20090719
  Serious: Yes (Disabling)
  Sender: FDA-Public Use
  Company Number: US-ROCHE-602896

PATIENT
  Sex: Female
  Weight: 61.7 kg

DRUGS (9)
  1. BONIVA [Suspect]
     Indication: OSTEOPOROSIS
     Route: 048
     Dates: start: 20050101
  2. FOSAMAX [Suspect]
     Indication: OSTEOPOROSIS
     Route: 048
     Dates: start: 19980101, end: 20050101
  3. LEVOTHYROXINE SODIUM [Concomitant]
     Dosage: DOSAGE REGIMEN : QD
     Route: 048
  4. PRAVASTATIN [Concomitant]
  5. XALATAN [Concomitant]
     Indication: GLAUCOMA
     Dosage: ROUTE: EYES, DOSAGE REGIMEN: QD
  6. VITAMIN [Concomitant]
  7. ALPHAGAN P [Concomitant]
     Dosage: ROUTE: EYES
  8. FIBER NOS [Concomitant]
     Dosage: DRUG: FIBER THERAPY, DOSAGE REGIMEN: QD
  9. VISION FORMULA [Concomitant]

REACTIONS (2)
  - NASOPHARYNGITIS [None]
  - STRESS FRACTURE [None]
